FAERS Safety Report 24827003 (Version 1)
Quarter: 2025Q1

REPORT INFORMATION
  Report Type: Spontaneous
  Country: US (occurrence: US)
  Receive Date: 20250109
  Receipt Date: 20250109
  Transmission Date: 20250408
  Serious: No
  Sender: VERONA PHARMA
  Company Number: US-VERONA PHARMA-VER-001007

PATIENT
  Sex: Male

DRUGS (1)
  1. OHTUVAYRE [Suspect]
     Active Substance: ENSIFENTRINE
     Indication: Chronic obstructive pulmonary disease
     Dosage: 3 MILLIGRAM, BID
     Dates: start: 202409

REACTIONS (3)
  - Blood pressure decreased [Unknown]
  - Drug effect less than expected [Unknown]
  - Product colour issue [Unknown]
